FAERS Safety Report 23812370 (Version 1)
Quarter: 2024Q2

REPORT INFORMATION
  Report Type: Spontaneous
  Country: US (occurrence: US)
  Receive Date: 20240503
  Receipt Date: 20240503
  Transmission Date: 20240715
  Serious: Yes (Other)
  Sender: FDA-Public Use
  Company Number: US-Merck Healthcare KGaA-2024022762

PATIENT

DRUGS (1)
  1. MAVENCLAD [Suspect]
     Active Substance: CLADRIBINE
     Indication: Multiple sclerosis

REACTIONS (5)
  - Skin cancer [Unknown]
  - Surgery [Unknown]
  - Peroneal nerve palsy [Unknown]
  - General physical health deterioration [Unknown]
  - Thinking abnormal [Unknown]
